FAERS Safety Report 9038482 (Version 1)
Quarter: 2013Q1

REPORT INFORMATION
  Report Type: Report from Study
  Country: US (occurrence: US)
  Receive Date: 20130129
  Receipt Date: 20130129
  Transmission Date: 20140127
  Serious: No
  Sender: FDA-Public Use
  Company Number: US-ABBOTT-12P-163-0934995-00

PATIENT
  Age: 50 Year
  Sex: Male

DRUGS (2)
  1. HUMIRA 40 MG/0.8 ML PEN [Suspect]
     Indication: PSORIASIS
     Route: 058
     Dates: start: 20120424
  2. LISINOPRIL 20 [Concomitant]
     Indication: HYPERTENSION
     Dosage: 12.5MG DAILY

REACTIONS (1)
  - Psoriasis [Not Recovered/Not Resolved]
